FAERS Safety Report 5959862-9 (Version None)
Quarter: 2008Q4

REPORT INFORMATION
  Report Type: 
  Country: None (occurrence: None)
  Receive Date: 20081110
  Receipt Date: 20080806
  Transmission Date: 20090506
  Serious: No
  Sender: FDA-Public Use
  Company Number: 2008US002103

PATIENT
  Age: 83 Year
  Sex: Female
  Weight: 58.5 kg

DRUGS (17)
  1. LEXISCAN [Suspect]
     Indication: CARDIAC STRESS TEST
     Dosage: 0.4 MG, TOTAL DOSE, IV NOS
     Route: 042
     Dates: start: 20080805, end: 20080805
  2. TYLENOL (CAPLET) [Concomitant]
  3. METOPROLOL TARTRATE [Concomitant]
  4. BENICAR [Concomitant]
  5. BENAZEPRIL HYDROCHLORIDE W/HYDROCHLOROTHIAZ. (BENAZEPRIL HYDROCHLORIDE [Concomitant]
  6. FUROSEMIDE [Concomitant]
  7. FENTANYL CITRATE [Concomitant]
  8. ASPIRIN (CITRIC ACID) [Concomitant]
  9. PRILOSEC (OMEPRAZOLE MAGNESIUM) [Concomitant]
  10. NAPROXEN SODIUM [Concomitant]
  11. KLOR-CON [Concomitant]
  12. FIBERCON (POLYCARBOPHIL) [Concomitant]
  13. CATAPRES [Concomitant]
  14. LIPITOR [Concomitant]
  15. CITALOPRAM (CITALOPRAM HYDROCHLORIDE) [Concomitant]
  16. PLAVIX [Concomitant]
  17. SENNA (SENNOSIDE A+B CALCIUM) [Concomitant]

REACTIONS (8)
  - BACK PAIN [None]
  - ELECTROCARDIOGRAM ST SEGMENT DEPRESSION [None]
  - HEADACHE [None]
  - MUSCLE SPASMS [None]
  - NAUSEA [None]
  - PAIN IN EXTREMITY [None]
  - RETCHING [None]
  - VOMITING [None]
